FAERS Safety Report 18049374 (Version 4)
Quarter: 2020Q3

REPORT INFORMATION
  Report Type: Spontaneous
  Country: JP (occurrence: JP)
  Receive Date: 20200721
  Receipt Date: 20200915
  Transmission Date: 20201103
  Serious: Yes (Other)
  Sender: FDA-Public Use
  Company Number: JP-GLAXOSMITHKLINE-JP2020JPN122177

PATIENT
  Age: 30 Year
  Sex: Female
  Weight: 45 kg

DRUGS (7)
  1. TOKISHAKUYAKUSAN [Concomitant]
     Active Substance: HERBALS
     Indication: PREMENSTRUAL SYNDROME
     Dosage: 7.5 MG, 1D
     Route: 048
     Dates: end: 20200626
  2. SHOFUSAN [Concomitant]
     Indication: PREMENSTRUAL SYNDROME
     Dosage: 7.5 MG, 1D
     Route: 048
     Dates: start: 20200623, end: 20200625
  3. CALONAL [Concomitant]
     Active Substance: ACETAMINOPHEN
     Indication: HEADACHE
     Dosage: UNK
     Route: 048
     Dates: start: 20200607, end: 20200607
  4. INCHINGOREISAN [Concomitant]
     Indication: PREMENSTRUAL SYNDROME
     Dosage: 7.5 MG, 1D
     Route: 048
     Dates: end: 20200621
  5. HEPARINOID CREAM [Concomitant]
     Indication: XEROSIS
     Dosage: UNK
     Route: 061
     Dates: end: 20200626
  6. AMERGE [Suspect]
     Active Substance: NARATRIPTAN HYDROCHLORIDE
     Indication: HEADACHE
     Dosage: 2.5 MG, 1D
     Route: 048
     Dates: start: 20200607, end: 20200607
  7. DERMOVATE [Suspect]
     Active Substance: CLOBETASOL
     Indication: SKIN ABRASION
     Dosage: UNK
     Route: 061
     Dates: end: 20200626

REACTIONS (14)
  - Back pain [Unknown]
  - Feeling hot [Unknown]
  - Abortion threatened [Recovered/Resolved]
  - Uterine polyp [Unknown]
  - Haemorrhage in pregnancy [Recovered/Resolved]
  - Malaise [Unknown]
  - Dizziness [Unknown]
  - Insomnia [Unknown]
  - Nausea [Unknown]
  - Dizziness postural [Unknown]
  - Exposure during pregnancy [Unknown]
  - Product use in unapproved indication [Unknown]
  - Physical deconditioning [Not Recovered/Not Resolved]
  - Vomiting [Unknown]

NARRATIVE: CASE EVENT DATE: 2020
